FAERS Safety Report 11316345 (Version 2)
Quarter: 2015Q3

REPORT INFORMATION
  Report Type: Spontaneous
  Country: US (occurrence: US)
  Receive Date: 20150728
  Receipt Date: 20150814
  Transmission Date: 20151125
  Serious: Yes (Hospitalization, Other)
  Sender: FDA-Public Use
  Company Number: US-AMGEN-USASP2015073160

PATIENT
  Age: 54 Year
  Sex: Male

DRUGS (16)
  1. AMLODIPINE [Concomitant]
     Active Substance: AMLODIPINE BESYLATE
     Dosage: UNK
  2. FISH OIL [Concomitant]
     Active Substance: FISH OIL
     Dosage: 1200 MG, UNK
  3. GABAPENTIN. [Concomitant]
     Active Substance: GABAPENTIN
     Indication: LIMB INJURY
     Dosage: 5 %, UNK
  4. LIDOCAINE. [Concomitant]
     Active Substance: LIDOCAINE
     Indication: LIMB INJURY
     Dosage: 2 %, UNK
  5. ENBREL [Suspect]
     Active Substance: ETANERCEPT
     Indication: PSORIATIC ARTHROPATHY
     Dosage: 50 MG, UNK
     Route: 065
     Dates: start: 200201
  6. ZESTRIL [Concomitant]
     Active Substance: LISINOPRIL
     Dosage: 20 MG, QD
  7. MELOXICAM. [Concomitant]
     Active Substance: MELOXICAM
     Indication: LIMB INJURY
     Dosage: UNK
  8. TOPIRAMATE. [Concomitant]
     Active Substance: TOPIRAMATE
     Indication: LIMB INJURY
     Dosage: 2.5 %, UNK
  9. PRILOSEC [Concomitant]
     Active Substance: OMEPRAZOLE MAGNESIUM
     Indication: ABDOMINAL DISCOMFORT
     Dosage: 20 MG, QD
  10. MELOXICAM. [Concomitant]
     Active Substance: MELOXICAM
     Dosage: 0.09 %, UNK
  11. PANAMYCIN [Concomitant]
     Dosage: UNK
  12. DESONIDE. [Concomitant]
     Active Substance: DESONIDE
     Indication: ARTHRITIS
     Dosage: UNK
  13. PENICILLIN                         /00000901/ [Concomitant]
     Active Substance: PENICILLIN G
     Dosage: UNK
  14. HYDROCHLOROTHIAZIDE. [Concomitant]
     Active Substance: HYDROCHLOROTHIAZIDE
     Dosage: UNK
  15. CLINDAMYCIN [Concomitant]
     Active Substance: CLINDAMYCIN\CLINDAMYCIN PHOSPHATE
     Dosage: UNK
  16. ASPIRIN                            /00002701/ [Concomitant]
     Active Substance: ASPIRIN
     Dosage: 81 MG, QD

REACTIONS (6)
  - Pain [Unknown]
  - Injection site pain [Unknown]
  - Rotator cuff syndrome [Unknown]
  - Spinal column stenosis [Unknown]
  - Knee arthroplasty [Unknown]
  - Surgery [Unknown]

NARRATIVE: CASE EVENT DATE: 2008
